FAERS Safety Report 6816820-X (Version None)
Quarter: 2010Q2

REPORT INFORMATION
  Report Type: 
  Country: None (occurrence: None)
  Receive Date: 20100630
  Receipt Date: 20100621
  Transmission Date: 20101027
  Serious: Yes (Hospitalization)
  Sender: FDA-Public Use
  Company Number: AXC-2010-000171

PATIENT
  Age: 59 Year

DRUGS (5)
  1. MESALAMINE [Suspect]
     Indication: COLITIS ULCERATIVE
  2. CYCLOSPORIN A (CICLOSPORIN) UNKNOWN [Suspect]
     Indication: DRUG USE FOR UNKNOWN INDICATION
  3. MYCOPHENOLATE SODIUM (MYCOPHENOLATE SODIUM) UNKNOWN [Suspect]
     Indication: DRUG USE FOR UNKNOWN INDICATION
  4. CORTICOSTEROIDS () UNKNOWN [Suspect]
     Indication: DRUG USE FOR UNKNOWN INDICATION
  5. TICLOPIDIN (TICLOPIDINE HYDROCHLORIDE) UNKNOWN [Suspect]
     Indication: DRUG USE FOR UNKNOWN INDICATION

REACTIONS (3)
  - EPSTEIN-BARR VIRUS INFECTION [None]
  - SCAR [None]
  - THROMBOTIC MICROANGIOPATHY [None]
